FAERS Safety Report 10215321 (Version 2)
Quarter: 2014Q2

REPORT INFORMATION
  Report Type: Spontaneous
  Country: US (occurrence: US)
  Receive Date: 20140603
  Receipt Date: 20140603
  Transmission Date: 20141212
  Serious: Yes (Hospitalization)
  Sender: FDA-Public Use
  Company Number: US-BRISTOL-MYERS SQUIBB COMPANY-20682720

PATIENT
  Age: 41 Year
  Sex: Female

DRUGS (6)
  1. BYDUREON [Suspect]
     Indication: TYPE 2 DIABETES MELLITUS
     Route: 058
     Dates: start: 20131112, end: 20140325
  2. TRADJENTA [Concomitant]
     Dates: start: 20131112
  3. METFORMIN [Concomitant]
     Dates: start: 20131112
  4. FLUOXETINE [Concomitant]
     Dates: start: 20131112
  5. SYNTHROID [Concomitant]
     Dates: start: 20131112
  6. VITAMIN D [Concomitant]
     Dates: start: 20131112

REACTIONS (2)
  - Impaired gastric emptying [Recovered/Resolved]
  - Cholecystitis [Recovered/Resolved]
